FAERS Safety Report 8958372 (Version 1)
Quarter: 2012Q4

REPORT INFORMATION
  Report Type: Report from Study
  Country: US (occurrence: US)
  Receive Date: 20121210
  Receipt Date: 20121210
  Transmission Date: 20130627
  Serious: Yes (Hospitalization)
  Sender: FDA-Public Use
  Company Number: US-GLAXOSMITHKLINE-A1004583A

PATIENT
  Age: 51 Year
  Sex: Female
  Weight: 101.8 kg

DRUGS (9)
  1. LAPATINIB [Suspect]
     Indication: BREAST CANCER
     Dosage: 1240MG Per day
     Route: 048
     Dates: start: 20100615
  2. CAPECITABINE [Suspect]
     Indication: BREAST CANCER
     Dosage: 2150MG Twice per day
     Dates: start: 20100615
  3. LOPERAMIDE [Concomitant]
     Route: 048
  4. ONDANSETRON [Concomitant]
     Route: 048
  5. LORAZEPAM [Concomitant]
     Route: 048
  6. FAMOTIDINE [Concomitant]
     Dosage: 20MG Per day
  7. SALBUTAMOL [Concomitant]
     Dosage: 1PUFF As required
     Route: 048
  8. MILK THISTLE [Concomitant]
     Route: 048
  9. MIRTAZAPINE [Concomitant]
     Route: 048

REACTIONS (1)
  - Dehydration [Recovered/Resolved]
